FAERS Safety Report 7387594-1 (Version None)
Quarter: 2011Q1

REPORT INFORMATION
  Report Type: 
  Country: None (occurrence: None)
  Receive Date: 20110331
  Receipt Date: 20090930
  Transmission Date: 20110831
  Serious: Yes (Other)
  Sender: FDA-Public Use
  Company Number: US-BAYER-200934652NA

PATIENT
  Sex: Female
  Weight: 66.213 kg

DRUGS (13)
  1. TRASYLOL [Suspect]
     Indication: CORONARY ARTERY BYPASS
     Dosage: 100 ML LOADING DOSE FOLLOWED BY 25ML/HR DRIP
     Route: 042
     Dates: start: 20060818, end: 20060818
  2. CARDIZEM [Concomitant]
     Dosage: 360 MG, QD
     Route: 048
  3. LASIX [Concomitant]
     Dosage: 20 MG, QD
     Route: 048
  4. SYNTHROID [Concomitant]
     Dosage: 0.05 MG, QD
     Route: 048
  5. AVAPRO [Concomitant]
     Dosage: 300 MG, QD
     Route: 048
  6. PAVULON [Concomitant]
     Dosage: 5 MG, UNK
     Route: 042
     Dates: start: 20060818, end: 20060818
  7. PHENYLEPHRINE HCL [Concomitant]
     Dosage: UNK
     Route: 042
     Dates: start: 20060818, end: 20060818
  8. LOPRESSOR [Concomitant]
     Dosage: 50 MG, 1-3 TIMES A DAY
     Route: 048
  9. LIPITOR [Concomitant]
     Dosage: UNK
     Route: 048
  10. VERSED [Concomitant]
     Dosage: 12 MG, UNK
     Route: 042
     Dates: start: 20060818, end: 20060818
  11. PROTAMINE SULFATE [Concomitant]
     Dosage: 350 MG, UNK
     Route: 042
     Dates: start: 20060818, end: 20060818
  12. HEPARIN SODIUM [Concomitant]
     Dosage: 18000 U, UNK
     Route: 042
     Dates: start: 20060818
  13. SUCCINYLCHOLINE CHLORIDE [Concomitant]
     Dosage: 100 MG, UNK
     Route: 042
     Dates: start: 20060818

REACTIONS (8)
  - RENAL FAILURE [None]
  - INJURY [None]
  - ANXIETY [None]
  - FEAR [None]
  - UNEVALUABLE EVENT [None]
  - PAIN [None]
  - DEPRESSION [None]
  - ANHEDONIA [None]
